FAERS Safety Report 8810342 (Version 1)
Quarter: 2012Q4

REPORT INFORMATION
  Report Type: 
  Country: US (occurrence: US)
  Receive Date: 20120926
  Receipt Date: 20120926
  Transmission Date: 20130627
  Serious: No
  Sender: FDA-Public Use
  Company Number: US-009507513-1209USA009485

PATIENT
  Sex: Female
  Weight: 68.27 kg

DRUGS (2)
  1. IMPLANON [Suspect]
     Indication: CONTRACEPTION
     Dosage: 1 DF, to 3 years
     Route: 059
     Dates: start: 20120529
  2. ZOLOFT [Concomitant]

REACTIONS (1)
  - Menorrhagia [Unknown]
